FAERS Safety Report 24013684 (Version 1)
Quarter: 2024Q2

REPORT INFORMATION
  Report Type: Spontaneous
  Country: US (occurrence: US)
  Receive Date: 20240626
  Receipt Date: 20240626
  Transmission Date: 20240716
  Serious: Yes (Other)
  Sender: FDA-Public Use
  Company Number: US-MLMSERVICE-20240610-PI089834-00101-1

PATIENT
  Age: 2 Year
  Sex: Male

DRUGS (4)
  1. CISPLATIN [Suspect]
     Active Substance: CISPLATIN
     Indication: Hepatoblastoma
  2. FLUOROURACIL [Suspect]
     Active Substance: FLUOROURACIL
     Indication: Hepatoblastoma
  3. DOXORUBICIN [Suspect]
     Active Substance: DOXORUBICIN
     Indication: Hepatoblastoma
  4. VINCRISTINE [Suspect]
     Active Substance: VINCRISTINE
     Indication: Hepatoblastoma

REACTIONS (7)
  - Nephropathy toxic [Unknown]
  - Electrolyte imbalance [Unknown]
  - Condition aggravated [Unknown]
  - Myelosuppression [Unknown]
  - Respiratory disorder [Unknown]
  - Infection [Unknown]
  - Off label use [Unknown]
